FAERS Safety Report 24000567 (Version 4)
Quarter: 2025Q3

REPORT INFORMATION
  Report Type: Spontaneous
  Country: EU (occurrence: EU)
  Receive Date: 20240621
  Receipt Date: 20250803
  Transmission Date: 20251020
  Serious: No
  Sender: ALEXION PHARMACEUTICALS
  Company Number: 2024A088373

PATIENT
  Age: 70 Year
  Sex: Female
  Weight: 56 kg

DRUGS (17)
  1. QUETIAPINE [Suspect]
     Active Substance: QUETIAPINE
     Indication: Anxiety disorder
     Dosage: 25 MILLIGRAM, QD
  2. QUETIAPINE [Suspect]
     Active Substance: QUETIAPINE
  3. BROMAZEPAM [Suspect]
     Active Substance: BROMAZEPAM
     Dosage: 6 MILLIGRAM, QD
  4. CANDESARTAN CILEXETIL [Concomitant]
     Active Substance: CANDESARTAN CILEXETIL
  5. RAMIPRIL [Concomitant]
     Active Substance: RAMIPRIL
     Dosage: 5 MILLIGRAM, QD
  6. PANTOPRAZOLE [Concomitant]
     Active Substance: PANTOPRAZOLE
     Dosage: 40 MILLIGRAM, QD
  7. APIXABAN [Concomitant]
     Active Substance: APIXABAN
  8. BISOPROLOL [Concomitant]
     Active Substance: BISOPROLOL
     Dosage: 2.5 MILLIGRAM, QD
  9. TORSEMIDE [Concomitant]
     Active Substance: TORSEMIDE
  10. LEVETIRACETAM [Suspect]
     Active Substance: LEVETIRACETAM
     Indication: Seizure
  11. LACOSAMIDE [Suspect]
     Active Substance: LACOSAMIDE
     Indication: Seizure
     Dosage: 200 MILLIGRAM, EVERY 12 HOURS
  12. AMLODIPINE [Concomitant]
     Active Substance: AMLODIPINE BESYLATE
     Dosage: 5 MILLIGRAM, QD
  13. TRIMIPRAMINE [Suspect]
     Active Substance: TRIMIPRAMINE
     Indication: Antidepressant therapy
  14. DOXYLAMINE [Suspect]
     Active Substance: DOXYLAMINE
     Dosage: 25 MILLIGRAM, QD
  15. INDAPAMIDE [Concomitant]
     Active Substance: INDAPAMIDE
  16. FOLIC ACID [Concomitant]
     Active Substance: FOLIC ACID
     Dosage: 100 MILLIGRAM, QOD
  17. IRON [Concomitant]
     Active Substance: IRON
     Dosage: 5 MILLIGRAM, QD

REACTIONS (4)
  - Gait disturbance [Unknown]
  - Fall [Unknown]
  - Sedation [Unknown]
  - Somnolence [Unknown]
